FAERS Safety Report 5036189-3 (Version None)
Quarter: 2006Q2

REPORT INFORMATION
  Report Type: 
  Country: None (occurrence: None)
  Receive Date: 20060531
  Receipt Date: 20050701
  Transmission Date: 20061013
  Serious: Yes (Other)
  Sender: FDA-Public Use
  Company Number: 2005097454

PATIENT
  Age: 72 Year
  Sex: Female

DRUGS (1)
  1. COLESTIPOL HCL [Suspect]
     Indication: STOMACH DISCOMFORT
     Dosage: 1.5 GRAM (1 GRAM, 1/2 TAB 3 IN 1 DAY), ORAL
     Route: 048
     Dates: start: 20040628

REACTIONS (1)
  - CHOKING [None]
